FAERS Safety Report 24460716 (Version 1)
Quarter: 2024Q4

REPORT INFORMATION
  Report Type: Spontaneous
  Country: HR (occurrence: HR)
  Receive Date: 20241018
  Receipt Date: 20241018
  Transmission Date: 20250114
  Serious: No
  Sender: ROCHE
  Company Number: HR-ROCHE-3560934

PATIENT
  Age: 39 Year
  Sex: Male

DRUGS (3)
  1. RITUXIMAB [Suspect]
     Active Substance: RITUXIMAB
     Indication: Immunodeficiency common variable
     Route: 065
     Dates: start: 2011
  2. RITUXIMAB [Suspect]
     Active Substance: RITUXIMAB
     Indication: Evans syndrome
  3. ELTROMBOPAG [Concomitant]
     Active Substance: ELTROMBOPAG
     Dosage: AVERAGE DOSE OF 50 MG

REACTIONS (2)
  - Off label use [Unknown]
  - No adverse event [Unknown]
